FAERS Safety Report 4546667-9 (Version None)
Quarter: 2005Q1

REPORT INFORMATION
  Report Type: 
  Country: None (occurrence: None)
  Receive Date: 20050105
  Receipt Date: 20041221
  Transmission Date: 20050727
  Serious: Yes (Death)
  Sender: FDA-Public Use
  Company Number: 2004AL000898

PATIENT
  Age: 42 Year
  Sex: Female

DRUGS (5)
  1. PROMETH SYRUP PLAIN (PROMETHAZINE HCL SYRUP USP, 6.25 MG/5ML) (ALPHARM [Suspect]
     Dosage: PO
     Route: 048
  2. INFANTS' APAP DROPS (ACETAMINOPHEN) (ALPHARMA) [Suspect]
     Dosage: PO
     Route: 048
  3. CHILDREN'S APAP ELIXIR (ACETAMINOPHEN) (ALPHARMA) [Suspect]
     Dosage: PO
     Route: 048
  4. PROPOXYPHENE [Suspect]
     Dosage: PO
     Route: 048
  5. ALPRAZOLAM TABLETS, USP, 2 MG (PUREPAC) [Suspect]
     Dosage: PO
     Route: 048

REACTIONS (3)
  - CARDIOMEGALY [None]
  - MULTIPLE DRUG OVERDOSE [None]
  - MYOCARDIAL FIBROSIS [None]
